FAERS Safety Report 20515186 (Version 3)
Quarter: 2024Q3

REPORT INFORMATION
  Report Type: Spontaneous
  Country: US (occurrence: US)
  Receive Date: 20220224
  Receipt Date: 20240926
  Transmission Date: 20241017
  Serious: Yes (Other)
  Sender: PFIZER
  Company Number: US-PFIZER INC-202200282651

PATIENT
  Age: 42 Year
  Sex: Female
  Weight: 75.75 kg

DRUGS (4)
  1. XELJANZ XR [Suspect]
     Active Substance: TOFACITINIB CITRATE
     Indication: Rheumatoid arthritis
     Dosage: 11 MG, 1X/DAY
     Route: 048
     Dates: end: 20240603
  2. XELJANZ XR [Suspect]
     Active Substance: TOFACITINIB CITRATE
     Dosage: 11 MG PO (PER ORAL) QD (ONCE A DAY)/TAKE 11 MG BY MOUTH 1 (ONE) TIME EACH DAY.
     Route: 048
  3. XELJANZ XR [Suspect]
     Active Substance: TOFACITINIB CITRATE
     Dosage: UNK, AS NEEDED
  4. MELOXICAM [Concomitant]
     Active Substance: MELOXICAM
     Indication: Rheumatoid arthritis
     Dosage: 15 MG, 1X/DAY

REACTIONS (10)
  - Mental impairment [Unknown]
  - Hysterectomy [Unknown]
  - Back pain [Not Recovered/Not Resolved]
  - Sciatica [Unknown]
  - Chest pain [Unknown]
  - Dyspnoea [Unknown]
  - Osteoarthritis [Unknown]
  - Arthralgia [Recovering/Resolving]
  - Muscle twitching [Unknown]
  - Infection [Unknown]

NARRATIVE: CASE EVENT DATE: 20240611
